FAERS Safety Report 8184625-6 (Version None)
Quarter: 2012Q1

REPORT INFORMATION
  Report Type: 
  Country: None (occurrence: None)
  Receive Date: 20120305
  Receipt Date: 20120301
  Transmission Date: 20120608
  Serious: Yes (Death, Life-Threatening, Hospitalization, Other)
  Sender: FDA-Public Use
  Company Number: GB-PFIZER INC-2012054791

PATIENT
  Age: 73 Year
  Sex: Male
  Weight: 89.8 kg

DRUGS (4)
  1. THYROXIN [Concomitant]
     Indication: PRIMARY HYPOTHYROIDISM
  2. SOMATROPIN [Suspect]
     Indication: GROWTH HORMONE DEFICIENCY
     Dosage: 0.2 MG, 1X/DAY 7 INJECTIONS PER WEEK
     Dates: start: 20030910
  3. THYROXIN [Concomitant]
     Indication: BLOOD THYROID STIMULATING HORMONE DECREASED
     Dosage: UNK
     Dates: start: 20040411
  4. HYDROCORTISONE [Concomitant]
     Indication: BLOOD CORTICOTROPHIN DECREASED
     Dosage: UNK
     Dates: start: 20020411

REACTIONS (1)
  - DEATH [None]
